FAERS Safety Report 11180716 (Version 1)
Quarter: 2015Q2

REPORT INFORMATION
  Report Type: Spontaneous
  Country: US (occurrence: US)
  Receive Date: 20150611
  Receipt Date: 20150611
  Transmission Date: 20150821
  Serious: Yes (Death, Other)
  Sender: FDA-Public Use
  Company Number: US-GLAXOSMITHKLINE-US2015GSK080680

PATIENT
  Age: 45 Year
  Sex: Female

DRUGS (18)
  1. TAFINLAR [Suspect]
     Active Substance: DABRAFENIB MESYLATE
     Indication: PRODUCT USED FOR UNKNOWN INDICATION
     Dosage: 75 MG, BID
     Route: 048
  2. PROCHLORPERAZINE. [Concomitant]
     Active Substance: PROCHLORPERAZINE
  3. PREDNISONE. [Concomitant]
     Active Substance: PREDNISONE
  4. OXYCODONE [Concomitant]
     Active Substance: OXYCODONE
  5. MAGNESIUM CITRATE. [Concomitant]
     Active Substance: MAGNESIUM CITRATE
  6. HYDROMORPHONE [Concomitant]
     Active Substance: HYDROMORPHONE
  7. NAMENDA [Concomitant]
     Active Substance: MEMANTINE HYDROCHLORIDE
  8. GABAPENTIN. [Concomitant]
     Active Substance: GABAPENTIN
  9. DIAZEPAM. [Concomitant]
     Active Substance: DIAZEPAM
  10. ONDANSETRON [Concomitant]
     Active Substance: ONDANSETRON
  11. LEUKINE [Concomitant]
     Active Substance: SARGRAMOSTIM
  12. DEXAMETHASONE. [Concomitant]
     Active Substance: DEXAMETHASONE
  13. OXYCONTIN [Concomitant]
     Active Substance: OXYCODONE HYDROCHLORIDE
  14. NAPROXEN. [Concomitant]
     Active Substance: NAPROXEN
  15. MEKINIST [Suspect]
     Active Substance: TRAMETINIB DIMETHYL SULFOXIDE
     Indication: PRODUCT USED FOR UNKNOWN INDICATION
     Dosage: 2 MG, QD
     Route: 048
  16. POLYETHYLENE GLYCOL [Concomitant]
     Active Substance: POLYETHYLENE GLYCOLS
  17. CITALOPRAM [Concomitant]
     Active Substance: CITALOPRAM HYDROBROMIDE
  18. TRAMADOL [Concomitant]
     Active Substance: TRAMADOL

REACTIONS (1)
  - Death [Fatal]

NARRATIVE: CASE EVENT DATE: 20150424
